FAERS Safety Report 25140662 (Version 1)
Quarter: 2025Q1

REPORT INFORMATION
  Report Type: Spontaneous
  Country: AR (occurrence: AR)
  Receive Date: 20250331
  Receipt Date: 20250331
  Transmission Date: 20250409
  Serious: Yes (Other)
  Sender: MYLAN
  Company Number: AR-MYLANLABS-2024M1088472

PATIENT
  Age: 51 Year
  Sex: Male

DRUGS (4)
  1. CLOZAPINE [Suspect]
     Active Substance: CLOZAPINE
     Indication: Schizophrenia
     Dosage: 4.5 DOSAGE FORM, QD
     Dates: start: 20110721
  2. Clonagin [Concomitant]
     Dosage: 2 DOSAGE FORM, QD (2 TABLETS PER DAY)
  3. Alernix cort [Concomitant]
     Indication: Pneumonia
     Dosage: 50 MICROGRAM, QD
  4. Alernix cort [Concomitant]
     Indication: Rhinitis allergic

REACTIONS (2)
  - Neutropenia [Recovered/Resolved]
  - Neutrophil count increased [Unknown]

NARRATIVE: CASE EVENT DATE: 20240927
